FAERS Safety Report 11304821 (Version 2)
Quarter: 2015Q4

REPORT INFORMATION
  Report Type: Spontaneous
  Country: US (occurrence: US)
  Receive Date: 20150723
  Receipt Date: 20151009
  Transmission Date: 20160304
  Serious: Yes (Hospitalization, Other)
  Sender: FDA-Public Use
  Company Number: US-PFIZER INC-2015242887

PATIENT
  Age: 52 Year
  Sex: Male

DRUGS (5)
  1. DEPO-TESTOSTERONE [Suspect]
     Active Substance: TESTOSTERONE CYPIONATE
     Indication: ERECTILE DYSFUNCTION
  2. DEPO-TESTOSTERONE [Suspect]
     Active Substance: TESTOSTERONE CYPIONATE
     Indication: HORMONE REPLACEMENT THERAPY
     Dosage: UNK
     Dates: start: 201208, end: 201402
  3. DEPO-TESTOSTERONE [Suspect]
     Active Substance: TESTOSTERONE CYPIONATE
     Indication: FATIGUE
     Dosage: 1 DF, MONTHLY
     Dates: start: 201208, end: 201305
  4. DEPO-TESTOSTERONE [Suspect]
     Active Substance: TESTOSTERONE CYPIONATE
     Indication: BLOOD GLUCOSE INCREASED
  5. DEPO-TESTOSTERONE [Suspect]
     Active Substance: TESTOSTERONE CYPIONATE
     Indication: LIBIDO DECREASED

REACTIONS (21)
  - Cardiac failure congestive [Unknown]
  - Activities of daily living impaired [Unknown]
  - Myocardial infarction [Unknown]
  - Amnesia [Unknown]
  - Loss of libido [Unknown]
  - Fatigue [Unknown]
  - Vision blurred [Unknown]
  - Neuropathy peripheral [Unknown]
  - Temperature intolerance [Unknown]
  - Asthenia [Unknown]
  - Localised infection [Unknown]
  - Dizziness [Unknown]
  - Somnolence [Unknown]
  - Hypersomnia [Unknown]
  - Syncope [Unknown]
  - Pain in extremity [Unknown]
  - Cellulitis [Unknown]
  - Erectile dysfunction [Unknown]
  - Dyspnoea [Unknown]
  - Chronic kidney disease [Unknown]
  - Blood glucose increased [Unknown]

NARRATIVE: CASE EVENT DATE: 20130301
